FAERS Safety Report 8387765-1 (Version None)
Quarter: 2012Q2

REPORT INFORMATION
  Report Type: 
  Country: None (occurrence: None)
  Receive Date: 20120525
  Receipt Date: 20120518
  Transmission Date: 20120825
  Serious: Yes (Other)
  Sender: FDA-Public Use
  Company Number: CA-GLAXOSMITHKLINE-A0978621A

PATIENT
  Sex: Male

DRUGS (1)
  1. VOTRIENT [Suspect]
     Indication: RENAL CANCER METASTATIC
     Dosage: 800MG PER DAY
     Route: 048
     Dates: start: 20120410

REACTIONS (5)
  - HAIR COLOUR CHANGES [None]
  - WEIGHT DECREASED [None]
  - DYSGEUSIA [None]
  - NEOPLASM MALIGNANT [None]
  - DECREASED APPETITE [None]
